FAERS Safety Report 10097481 (Version 1)
Quarter: 2014Q2

REPORT INFORMATION
  Report Type: Spontaneous
  Country: US (occurrence: US)
  Receive Date: 20140423
  Receipt Date: 20140423
  Transmission Date: 20141212
  Serious: No
  Sender: FDA-Public Use
  Company Number: US-009507513-1404USA009596

PATIENT
  Age: 17 Year
  Sex: Male

DRUGS (3)
  1. CLARITIN [Suspect]
     Indication: PRODUCT USED FOR UNKNOWN INDICATION
     Dosage: UNK, UNKNOWN
     Route: 048
  2. FLONASE [Concomitant]
  3. GEODON [Concomitant]
     Indication: ABNORMAL BEHAVIOUR

REACTIONS (1)
  - Drug ineffective [Unknown]
